FAERS Safety Report 15009630 (Version 1)
Quarter: 2018Q2

REPORT INFORMATION
  Report Type: Spontaneous
  Country: US (occurrence: US)
  Receive Date: 20180614
  Receipt Date: 20180614
  Transmission Date: 20180711
  Serious: Yes (Death)
  Sender: FDA-Public Use
  Company Number: US-ROCHE-2139663

PATIENT
  Sex: Female
  Weight: 54.48 kg

DRUGS (1)
  1. BONIVA [Suspect]
     Active Substance: IBANDRONATE SODIUM
     Indication: OSTEOARTHRITIS
     Dosage: ONGOING: NO
     Route: 048

REACTIONS (2)
  - Scleroderma [Fatal]
  - Drug ineffective [Unknown]

NARRATIVE: CASE EVENT DATE: 201304
